FAERS Safety Report 21166143 (Version 1)
Quarter: 2022Q3

REPORT INFORMATION
  Report Type: Spontaneous
  Country: US (occurrence: None)
  Receive Date: 20220802
  Receipt Date: 20220802
  Transmission Date: 20221026
  Serious: No
  Sender: FDA-Public Use
  Company Number: None

PATIENT
  Age: 32 Year
  Sex: Female
  Weight: 72 kg

DRUGS (2)
  1. ELURYNG [Suspect]
     Active Substance: ETHINYL ESTRADIOL\ETONOGESTREL
     Indication: Contraception
     Dosage: OTHER QUANTITY : 1 RING;?OTHER FREQUENCY : EVERY 28 DAYS;?
     Route: 067
  2. ELURYNG [Concomitant]
     Active Substance: ETHINYL ESTRADIOL\ETONOGESTREL

REACTIONS (10)
  - Product substitution issue [None]
  - Muscle spasms [None]
  - Pain [None]
  - Vaginal haemorrhage [None]
  - Vulvovaginal pain [None]
  - Abdominal distension [None]
  - Back pain [None]
  - Migraine [None]
  - Inability to afford medication [None]
  - Insurance issue [None]
